FAERS Safety Report 12769913 (Version 1)
Quarter: 2016Q3

REPORT INFORMATION
  Report Type: Spontaneous
  Country: US (occurrence: US)
  Receive Date: 20160922
  Receipt Date: 20160922
  Transmission Date: 20161109
  Serious: Yes (Other)
  Sender: FDA-Public Use
  Company Number: US-CONCORDIA PHARMACEUTICALS INC.-GSH201609-004627

PATIENT
  Age: 42 Year
  Sex: Male

DRUGS (10)
  1. PREDNISONE. [Concomitant]
     Active Substance: PREDNISONE
  2. PLAQUENIL [Suspect]
     Active Substance: HYDROXYCHLOROQUINE SULFATE
  3. CALCIUM [Concomitant]
     Active Substance: CALCIUM
     Dosage: IN THE MORNING
  4. METHOTREXATE. [Concomitant]
     Active Substance: METHOTREXATE
     Dosage: 25 MG/CC LIQUID
  5. NIFEDIPINE. [Concomitant]
     Active Substance: NIFEDIPINE
  6. SILDENAFIL. [Concomitant]
     Active Substance: SILDENAFIL
  7. FOLIC ACID. [Concomitant]
     Active Substance: FOLIC ACID
  8. MYCOPHENOLATE MOFETIL. [Suspect]
     Active Substance: MYCOPHENOLATE MOFETIL
  9. PRILOSEC [Concomitant]
     Active Substance: OMEPRAZOLE MAGNESIUM
  10. PROAIR HFA AEROSOL [Concomitant]
     Dosage: 2 PUFFS 4 TIMES A DAY

REACTIONS (2)
  - Rash [Unknown]
  - Drug hypersensitivity [Unknown]
